FAERS Safety Report 8078325-0 (Version None)
Quarter: 2012Q1

REPORT INFORMATION
  Report Type: 
  Country: None (occurrence: None)
  Receive Date: 20120123
  Receipt Date: 20120113
  Transmission Date: 20120608
  Serious: Yes (Life-Threatening, Hospitalization)
  Sender: FDA-Public Use
  Company Number: AUR-APL-2012-00502

PATIENT
  Age: 88 Year
  Sex: Female

DRUGS (10)
  1. DOXAZOSIN MESYLATE [Concomitant]
  2. ALBUTEROL SULFATE [Concomitant]
  3. CALCICHEW D3 (LEKOVIT CA) [Concomitant]
  4. CITALOPRAM HYDROBROMIDE [Concomitant]
  5. BUMETANIDE [Concomitant]
  6. FUROSEMIDE [Concomitant]
  7. AMOXICILLIN [Suspect]
     Indication: CELLULITIS
     Dosage: ORAL
     Route: 048
     Dates: start: 20111125, end: 20111125
  8. ARANESP [Concomitant]
  9. ACETAMINOPHEN W/ CODEINE [Concomitant]
  10. LEVOTHYROXINE SODIUM [Concomitant]

REACTIONS (3)
  - SWOLLEN TONGUE [None]
  - EYELID OEDEMA [None]
  - DYSPNOEA [None]
